FAERS Safety Report 6672127-5 (Version None)
Quarter: 2010Q2

REPORT INFORMATION
  Report Type: 
  Country: None (occurrence: None)
  Receive Date: 20100407
  Receipt Date: 20100407
  Transmission Date: 20101027
  Serious: Yes (Life-Threatening, Hospitalization, Disabling)
  Sender: FDA-Public Use
  Company Number: None

PATIENT
  Age: 69 Year
  Sex: Female
  Weight: 79.3795 kg

DRUGS (1)
  1. FOSAMAX [Suspect]
     Indication: OSTEOPOROSIS
     Dosage: 1 TABLET 1 X WEEKLY PO, OVER 10 YEARS
     Route: 048

REACTIONS (6)
  - ARTHRALGIA [None]
  - BONE PAIN [None]
  - FALL [None]
  - FEMUR FRACTURE [None]
  - JOINT DISLOCATION [None]
  - UPPER LIMB FRACTURE [None]
